FAERS Safety Report 5355972-8 (Version None)
Quarter: 2007Q2

REPORT INFORMATION
  Report Type: 
  Country: None (occurrence: None)
  Receive Date: 20070613
  Receipt Date: 20070529
  Transmission Date: 20071010
  Serious: Yes (Other)
  Sender: FDA-Public Use
  Company Number: CA-ROCHE-488287

PATIENT
  Age: 51 Year
  Sex: Male
  Weight: 78 kg

DRUGS (7)
  1. PEGASYS [Suspect]
     Indication: HEPATITIS C
     Dosage: DRUG REPORTED AS INSULIN NPH AND SLIDING SCALE
     Route: 058
     Dates: start: 20070123
  2. COPEGUS [Suspect]
     Indication: HEPATITIS C
     Route: 048
     Dates: start: 20070123, end: 20070313
  3. COPEGUS [Suspect]
     Route: 048
     Dates: start: 20070314
  4. NPH ILETIN II [Concomitant]
     Route: 058
  5. LASIX [Concomitant]
     Route: 048
  6. RHOVANE [Concomitant]
     Indication: INSOMNIA
     Route: 048
  7. ENALAPRIL MALEATE [Concomitant]
     Indication: HYPERTENSION
     Route: 048

REACTIONS (3)
  - CELLULITIS [None]
  - HERPES ZOSTER [None]
  - IMPETIGO [None]
